FAERS Safety Report 8463984-0 (Version None)
Quarter: 2012Q2

REPORT INFORMATION
  Report Type: 
  Country: None (occurrence: None)
  Receive Date: 20120625
  Receipt Date: 20120618
  Transmission Date: 20120825
  Serious: Yes (Hospitalization, Other)
  Sender: FDA-Public Use
  Company Number: US-US-EMD SERONO, INC.-233313J08USA

PATIENT
  Sex: Female
  Weight: 66 kg

DRUGS (3)
  1. REBIF [Suspect]
     Indication: MULTIPLE SCLEROSIS
     Route: 058
     Dates: start: 20070803, end: 20080403
  2. REBIF [Suspect]
     Route: 058
     Dates: start: 20080404
  3. MECLIZINE [Concomitant]
     Indication: DIZZINESS

REACTIONS (3)
  - ARTHRITIS [None]
  - DYSURIA [None]
  - DIZZINESS [None]
